FAERS Safety Report 5341799-X (Version None)
Quarter: 2007Q2

REPORT INFORMATION
  Report Type: 
  Country: None (occurrence: None)
  Receive Date: 20070529
  Receipt Date: 20070529
  Transmission Date: 20071010
  Serious: No
  Sender: FDA-Public Use
  Company Number: None

PATIENT
  Age: 43 Year
  Sex: Female
  Weight: 70.3075 kg

DRUGS (10)
  1. PAXIL [Suspect]
     Indication: DEPRESSION
     Dosage: 10MG
     Dates: start: 19930806, end: 19950905
  2. EFFEXOR [Suspect]
     Indication: DEPRESSION
     Dosage: 150MG
     Dates: start: 20050517, end: 20070121
  3. PAXIL [Concomitant]
  4. PROZAC [Concomitant]
  5. WELLBUTRIN [Concomitant]
  6. CELEXA [Concomitant]
  7. LEXAPRO [Concomitant]
  8. ZOLOFT [Concomitant]
  9. EFFEXOR [Concomitant]
  10. SERZONE [Concomitant]

REACTIONS (4)
  - ANGER [None]
  - DEPRESSION [None]
  - SEXUAL DYSFUNCTION [None]
  - UNEVALUABLE EVENT [None]
